FAERS Safety Report 12312684 (Version 2)
Quarter: 2016Q2

REPORT INFORMATION
  Report Type: Other
  Country: GB (occurrence: GB)
  Receive Date: 20160428
  Receipt Date: 20160428
  Transmission Date: 20160815
  Serious: Yes (Disabling, Other)
  Sender: FDA-Public Use
  Company Number: GB-CIPLA LTD.-2016GB04175

PATIENT

DRUGS (3)
  1. AMOXICILLIN. [Interacting]
     Active Substance: AMOXICILLIN
     Indication: OTITIS MEDIA
     Dosage: 500 MG, UNK
     Route: 048
     Dates: start: 20160217, end: 20160221
  2. AMOXICILLIN. [Interacting]
     Active Substance: AMOXICILLIN
     Dosage: 500 MG, UNK
     Route: 048
     Dates: start: 20160224
  3. CITALOPRAM [Suspect]
     Active Substance: CITALOPRAM HYDROBROMIDE
     Indication: ANXIETY
     Dosage: 30 MG, QD
     Route: 065

REACTIONS (4)
  - Suicidal ideation [Not Recovered/Not Resolved]
  - Agitated depression [Not Recovered/Not Resolved]
  - Anxiety [Not Recovered/Not Resolved]
  - Drug interaction [Unknown]
